FAERS Safety Report 7998549-8 (Version None)
Quarter: 2011Q4

REPORT INFORMATION
  Report Type: 
  Country: None (occurrence: None)
  Receive Date: 20111221
  Receipt Date: 20111214
  Transmission Date: 20120403
  Serious: Yes (Other)
  Sender: FDA-Public Use
  Company Number: US-US-EMD SERONO, INC.-7101981

PATIENT
  Sex: Female

DRUGS (1)
  1. REBIF [Suspect]
     Indication: PRODUCT USED FOR UNKNOWN INDICATION
     Route: 058
     Dates: start: 20110908

REACTIONS (6)
  - BAND SENSATION [None]
  - FATIGUE [None]
  - NEOPLASM MALIGNANT [None]
  - ABSCESS [None]
  - INFLUENZA [None]
  - SINUS DISORDER [None]
